APPROVED DRUG PRODUCT: COLESEVELAM HYDROCHLORIDE
Active Ingredient: COLESEVELAM HYDROCHLORIDE
Strength: 625MG
Dosage Form/Route: TABLET;ORAL
Application: A204893 | Product #001
Applicant: MACLEODS PHARMACEUTICALS LTD
Approved: Apr 18, 2025 | RLD: No | RS: No | Type: DISCN